FAERS Safety Report 8869013 (Version 1)
Quarter: 2012Q4

REPORT INFORMATION
  Report Type: 
  Country: US (occurrence: US)
  Receive Date: 20121027
  Receipt Date: 20121027
  Transmission Date: 20130627
  Serious: Yes (Disabling)
  Sender: FDA-Public Use
  Company Number: US-MERCK-1210USA007089

PATIENT

DRUGS (1)
  1. PROPECIA [Suspect]

REACTIONS (11)
  - Anxiety [Unknown]
  - Sexual dysfunction [Unknown]
  - Cognitive disorder [Unknown]
  - Depression [Unknown]
  - Libido decreased [Unknown]
  - Erectile dysfunction [Unknown]
  - Erectile dysfunction [Unknown]
  - Ejaculation disorder [Unknown]
  - Emotional disorder [Unknown]
  - Mental disorder [Unknown]
  - Mental disorder [Unknown]
